FAERS Safety Report 5642850-X (Version None)
Quarter: 2008Q1

REPORT INFORMATION
  Report Type: 
  Country: None (occurrence: None)
  Receive Date: 20080228
  Receipt Date: 20080226
  Transmission Date: 20080703
  Serious: Yes (Death)
  Sender: FDA-Public Use
  Company Number: PHNU2008DE01129

PATIENT
  Sex: Male

DRUGS (1)
  1. LEPONEX [Suspect]
     Dosage: 500 MG/DAY
     Route: 048

REACTIONS (3)
  - COMPLETED SUICIDE [None]
  - HYPERVENTILATION [None]
  - RESTLESSNESS [None]
